FAERS Safety Report 7340296-X (Version None)
Quarter: 2011Q1

REPORT INFORMATION
  Report Type: 
  Country: None (occurrence: None)
  Receive Date: 20110309
  Receipt Date: 20110301
  Transmission Date: 20110831
  Serious: Yes (Hospitalization)
  Sender: FDA-Public Use
  Company Number: US-BIOGENIDEC-2011BI007764

PATIENT
  Age: 59 Year
  Sex: Male

DRUGS (1)
  1. TYSABRI [Suspect]
     Indication: MULTIPLE SCLEROSIS
     Route: 042
     Dates: start: 20100702, end: 20101103

REACTIONS (3)
  - CONFUSIONAL STATE [None]
  - RENAL CANCER [None]
  - ASTHENIA [None]
